FAERS Safety Report 9245183 (Version 2)
Quarter: 2013Q2

REPORT INFORMATION
  Report Type: Spontaneous
  Country: JP (occurrence: JP)
  Receive Date: 20130422
  Receipt Date: 20130507
  Transmission Date: 20140414
  Serious: Yes (Other)
  Sender: FDA-Public Use
  Company Number: JP-PFIZER INC-2013125132

PATIENT
  Age: 69 Year
  Sex: Female
  Weight: 62 kg

DRUGS (3)
  1. CELECOX [Suspect]
     Indication: PAIN
     Dosage: 100 MG BID
     Route: 048
     Dates: start: 20130401, end: 20130404
  2. REBAMIPIDE [Suspect]
     Indication: PROPHYLAXIS
     Dosage: 100 MG, 2X/DAY
     Route: 048
     Dates: start: 20130401, end: 20130404
  3. LIVALO [Suspect]
     Indication: HYPERLIPIDAEMIA
     Dosage: 1 DF, 1X/DAY (UID)
     Route: 048
     Dates: end: 20130404

REACTIONS (1)
  - Drug eruption [Not Recovered/Not Resolved]
